FAERS Safety Report 10553224 (Version 1)
Quarter: 2014Q4

REPORT INFORMATION
  Report Type: Spontaneous
  Country: US (occurrence: US)
  Receive Date: 20141030
  Receipt Date: 20141030
  Transmission Date: 20150529
  Serious: No
  Sender: FDA-Public Use
  Company Number: US-TEVA-456151USA

PATIENT
  Age: 4 Year
  Sex: Female

DRUGS (3)
  1. IODINE [Suspect]
     Active Substance: IODINE
  2. DESMOPRESSIN [Suspect]
     Active Substance: DESMOPRESSIN
     Indication: URINARY INCONTINENCE
     Dosage: .1 MILLIGRAM DAILY; IN A.M.
     Route: 048
     Dates: start: 20140108
  3. DESMOPRESSIN [Suspect]
     Active Substance: DESMOPRESSIN
     Dosage: .3 MILLIGRAM DAILY; IN EVENING
     Route: 048
     Dates: start: 20140108

REACTIONS (1)
  - Rash [Unknown]

NARRATIVE: CASE EVENT DATE: 201401
